FAERS Safety Report 17929789 (Version 9)
Quarter: 2021Q2

REPORT INFORMATION
  Report Type: Spontaneous
  Country: US (occurrence: US)
  Receive Date: 20200623
  Receipt Date: 20210429
  Transmission Date: 20210717
  Serious: Yes (Life-Threatening, Other)
  Sender: FDA-Public Use
  Company Number: US-PFIZER INC-2020241426

PATIENT
  Age: 55 Year
  Sex: Male
  Weight: 154 kg

DRUGS (9)
  1. PROPOFOL. [Suspect]
     Active Substance: PROPOFOL
     Indication: ANAESTHESIA
     Dosage: 395 MG (395 MG TOTAL DURING A SURGERY; 120MG 1115, 100MG 1140, 100MG 1235, 75MG 1315)
     Dates: start: 20200616, end: 20200616
  2. KETAMINE HCL [Suspect]
     Active Substance: KETAMINE HYDROCHLORIDE
     Indication: ANAESTHESIA
     Dosage: 100 MG, SINGLE (1 TIME DOSE)
     Dates: start: 20200616, end: 20200616
  3. MIDAZOLAM. [Suspect]
     Active Substance: MIDAZOLAM
     Indication: ANAESTHESIA
     Dosage: 4 MG (4MG TOTAL; 2MG 10:30 AND 2MG 11AM)
     Dates: start: 20200616, end: 20200616
  4. SUCCINYLCHOLINE CHLORIDE. [Suspect]
     Active Substance: SUCCINYLCHOLINE CHLORIDE
     Indication: ANAESTHESIA
     Dosage: 140 MG, SINGLE (1 TIME DOSE)
     Dates: start: 20200616, end: 20200616
  5. DESFLURANE. [Suspect]
     Active Substance: DESFLURANE
     Indication: ANAESTHESIA
     Dosage: 5 ET % AT 11 AM 11:40 AM 12:30AM 12:40 AM 13:30 AND 13:40
     Dates: start: 20200616, end: 20200616
  6. FENTANYL CITRATE. [Suspect]
     Active Substance: FENTANYL CITRATE
     Indication: PAIN
     Dosage: 100 UG (IN OR)
     Dates: start: 20200616, end: 20200616
  7. HYDROCHLOROTHIAZIDE. [Concomitant]
     Active Substance: HYDROCHLOROTHIAZIDE
     Indication: HYPERTENSION
     Dosage: 25 MG, 1X/DAY(25MG IN THE MORNING, HAD TAKEN DOSE THE DAY OF SURGERY)
  8. FENTANYL CITRATE. [Suspect]
     Active Substance: FENTANYL CITRATE
     Indication: ANAESTHESIA
     Dosage: 25 UG (IN PACU (POST ANESTHESIA CARE UNIT))
     Dates: start: 20200616, end: 20200616
  9. AMLODIPINE [Concomitant]
     Active Substance: AMLODIPINE BESYLATE
     Indication: HYPERTENSION
     Dosage: UNK (A DOSE WAS TAKEN THE DAY OF SURGERY)

REACTIONS (2)
  - Hypotension [Recovered/Resolved]
  - Bradycardia [Recovered/Resolved]

NARRATIVE: CASE EVENT DATE: 20200616
